FAERS Safety Report 21208762 (Version 1)
Quarter: 2022Q3

REPORT INFORMATION
  Report Type: Report from Study
  Country: AR (occurrence: AR)
  Receive Date: 20220812
  Receipt Date: 20220812
  Transmission Date: 20221027
  Serious: Yes (Other)
  Sender: FDA-Public Use
  Company Number: AR-NOVARTISPH-NVSC2022AR182442

PATIENT
  Sex: Male

DRUGS (1)
  1. METFORMIN HYDROCHLORIDE\VILDAGLIPTIN [Suspect]
     Active Substance: METFORMIN HYDROCHLORIDE\VILDAGLIPTIN
     Indication: Type 2 diabetes mellitus
     Dosage: 2 (UNIT NOT PROVIDED), QD
     Route: 065

REACTIONS (5)
  - Myocardial infarction [Recovered/Resolved]
  - Memory impairment [Recovered/Resolved]
  - Blood cholesterol increased [Unknown]
  - Arterial disorder [Recovered/Resolved]
  - Irritability [Unknown]
